FAERS Safety Report 5827728-0 (Version None)
Quarter: 2008Q2

REPORT INFORMATION
  Report Type: 
  Country: None (occurrence: None)
  Receive Date: 20080601
  Receipt Date: 20080226
  Transmission Date: 20081010
  Serious: No
  Sender: FDA-Public Use
  Company Number: US200802002247

PATIENT
  Age: 55 Year
  Sex: Female

DRUGS (6)
  1. BYETTA [Suspect]
     Indication: TYPE 2 DIABETES MELLITUS
     Dosage: 5 UG, 2/D, SUBCUTANEOUS; 10 UG, 2/D, SUBCUTANEOUS
     Route: 058
     Dates: start: 20071114, end: 20071221
  2. BYETTA [Suspect]
     Indication: TYPE 2 DIABETES MELLITUS
     Dosage: 5 UG, 2/D, SUBCUTANEOUS; 10 UG, 2/D, SUBCUTANEOUS
     Route: 058
     Dates: start: 20071221, end: 20080210
  3. GLUCOPHAGE (METFORMIN) TABLET [Concomitant]
  4. DIOVAN (HYDROCHLOROTHIAZIDE, VALSARTAN) [Concomitant]
  5. SPIRONOLACTONE [Concomitant]
  6. PRILOSEC [Concomitant]

REACTIONS (2)
  - BLOOD GLUCOSE INCREASED [None]
  - GASTROENTERITIS [None]
